FAERS Safety Report 10387356 (Version 1)
Quarter: 2014Q3

REPORT INFORMATION
  Report Type: Spontaneous
  Country: US (occurrence: US)
  Receive Date: 20140815
  Receipt Date: 20140815
  Transmission Date: 20150326
  Serious: Yes (Hospitalization, Other)
  Sender: FDA-Public Use
  Company Number: PHHY2014US097732

PATIENT
  Age: 2 Year
  Sex: Male

DRUGS (2)
  1. CLONAZEPAM. [Suspect]
     Active Substance: CLONAZEPAM
  2. LIDOCAINE. [Suspect]
     Active Substance: LIDOCAINE
     Dosage: 0.25 ML, UNK
     Route: 061

REACTIONS (8)
  - Drug level increased [Unknown]
  - Unresponsive to stimuli [Unknown]
  - Ataxia [Unknown]
  - Posture abnormal [Unknown]
  - Gait disturbance [Unknown]
  - Drooling [Unknown]
  - Drug administration error [Unknown]
  - Toxicity to various agents [Unknown]
